FAERS Safety Report 21433149 (Version 2)
Quarter: 2025Q2

REPORT INFORMATION
  Report Type: Spontaneous
  Country: IT (occurrence: IT)
  Receive Date: 20221010
  Receipt Date: 20250526
  Transmission Date: 20250716
  Serious: Yes (Life-Threatening, Other)
  Sender: AUROBINDO
  Company Number: IT-PFIZER INC-PV202200073643

PATIENT
  Age: 44 Year
  Sex: Male

DRUGS (8)
  1. LINEZOLID [Suspect]
     Active Substance: LINEZOLID
     Indication: Meningitis bacterial
     Dosage: 1200 MILLIGRAM, ONCE A DAY(600 MG EVERY 12 HOURS)
     Route: 065
     Dates: start: 20220105, end: 20220109
  2. LINEZOLID [Suspect]
     Active Substance: LINEZOLID
     Indication: Klebsiella infection
  3. AVIBACTAM SODIUM\CEFTAZIDIME [Suspect]
     Active Substance: AVIBACTAM SODIUM\CEFTAZIDIME
     Indication: Meningitis bacterial
     Dosage: 2.5 GRAM, 3 TIMES A DAY((EXTENDED INFUSION OF 3 HOURS PLUS))
     Route: 065
     Dates: start: 20220105, end: 20220129
  4. AVIBACTAM SODIUM\CEFTAZIDIME [Suspect]
     Active Substance: AVIBACTAM SODIUM\CEFTAZIDIME
     Indication: Klebsiella infection
  5. AVIBACTAM SODIUM\CEFTAZIDIME [Concomitant]
     Active Substance: AVIBACTAM SODIUM\CEFTAZIDIME
     Indication: Meningitis bacterial
     Dosage: 2.5 GRAM, 3 TIMES A DAY
     Route: 065
  6. AVIBACTAM SODIUM\CEFTAZIDIME [Concomitant]
     Active Substance: AVIBACTAM SODIUM\CEFTAZIDIME
     Indication: Klebsiella infection
  7. FOSFOMYCIN [Concomitant]
     Active Substance: FOSFOMYCIN
     Indication: Meningitis bacterial
     Dosage: 24 GRAM, ONCE A DAY(6 G, 4X/DAY (EVERY 6 HOURS))
     Route: 065
     Dates: start: 20220105, end: 2022
  8. FOSFOMYCIN [Concomitant]
     Active Substance: FOSFOMYCIN
     Indication: Klebsiella infection

REACTIONS (2)
  - Pathogen resistance [Unknown]
  - Off label use [Recovered/Resolved]
